FAERS Safety Report 20252342 (Version 1)
Quarter: 2021Q4

REPORT INFORMATION
  Report Type: Report from Study
  Country: US (occurrence: US)
  Receive Date: 20211229
  Receipt Date: 20211229
  Transmission Date: 20220304
  Serious: Yes (Hospitalization)
  Sender: FDA-Public Use
  Company Number: US-ABBVIE-21K-163-4207404-00

PATIENT
  Age: 17 Year
  Sex: Male
  Weight: 35 kg

DRUGS (27)
  1. HUMIRA [Suspect]
     Active Substance: ADALIMUMAB
     Indication: Crohn^s disease
     Route: 058
     Dates: start: 201309, end: 201403
  2. METHOTREXATE [Suspect]
     Active Substance: METHOTREXATE
     Indication: Crohn^s disease
     Route: 048
     Dates: start: 20160220, end: 20190327
  3. CLOBETASOL [Concomitant]
     Active Substance: CLOBETASOL
     Indication: Stoma site ulcer
     Dosage: AS REQUIRED
     Route: 061
     Dates: start: 20150403
  4. AZITHROMYCIN [Concomitant]
     Active Substance: AZITHROMYCIN
     Indication: Crohn^s disease
     Route: 048
     Dates: start: 20200109
  5. CHOLECALCIFEROL [Concomitant]
     Active Substance: CHOLECALCIFEROL
     Indication: Supplementation therapy
     Route: 048
     Dates: start: 20180702
  6. FEXOFENADINE [Concomitant]
     Active Substance: FEXOFENADINE HYDROCHLORIDE
     Indication: Seasonal allergy
     Route: 048
     Dates: start: 20190509
  7. FLUOCINONIDE [Concomitant]
     Active Substance: FLUOCINONIDE
     Indication: Pityriasis
     Dosage: AS REQUIRED
     Route: 048
     Dates: start: 20190722
  8. FOLIC ACID [Concomitant]
     Active Substance: FOLIC ACID
     Indication: Supplementation therapy
     Route: 048
     Dates: start: 20160220
  9. KATE FARMS PEPTIDE [Concomitant]
     Indication: Nutritional supplementation
     Route: 048
     Dates: start: 202105
  10. HONEY [Concomitant]
     Active Substance: HONEY
     Indication: Stoma site reaction
     Route: 061
     Dates: start: 2019
  11. MEGESTROL [Concomitant]
     Active Substance: MEGESTROL
     Indication: Failure to thrive
     Route: 048
     Dates: start: 20170215
  12. VITAMINS [Concomitant]
     Active Substance: VITAMINS
     Indication: Supplementation therapy
     Route: 048
     Dates: start: 2013
  13. VITAMINS [Concomitant]
     Active Substance: VITAMINS
     Route: 048
     Dates: start: 20211218, end: 20211219
  14. ZYRTEC [Concomitant]
     Active Substance: CETIRIZINE HYDROCHLORIDE
     Indication: Premedication
     Route: 048
     Dates: start: 20200923
  15. TACROLIMUS [Concomitant]
     Active Substance: TACROLIMUS
     Indication: Stoma site ulcer
     Route: 061
     Dates: start: 20150807
  16. VANCOMYCIN [Concomitant]
     Active Substance: VANCOMYCIN
     Indication: Stoma site inflammation
     Route: 048
     Dates: start: 20190916
  17. FLAGYL [Concomitant]
     Active Substance: METRONIDAZOLE\METRONIDAZOLE HYDROCHLORIDE
     Indication: Crohn^s disease
     Route: 048
     Dates: start: 201309, end: 201403
  18. FLAGYL [Concomitant]
     Active Substance: METRONIDAZOLE\METRONIDAZOLE HYDROCHLORIDE
     Indication: Stoma site inflammation
     Dosage: IN STOMA SITE
     Route: 065
     Dates: start: 201911
  19. FLAGYL [Concomitant]
     Active Substance: METRONIDAZOLE\METRONIDAZOLE HYDROCHLORIDE
     Route: 048
     Dates: start: 20211025
  20. OMEPRAZOLE [Concomitant]
     Active Substance: OMEPRAZOLE
     Indication: Gastritis
     Route: 048
     Dates: start: 201911
  21. MIRTAZAPINE [Concomitant]
     Active Substance: MIRTAZAPINE
     Indication: Weight increased
     Route: 048
     Dates: start: 201912
  22. ORGAIN KIDS PROTEIN [Concomitant]
     Indication: Weight abnormal
     Dosage: 2-5 BOXES
     Route: 048
     Dates: start: 2019
  23. PREDNISONE [Concomitant]
     Active Substance: PREDNISONE
     Indication: Crohn^s disease
     Route: 048
     Dates: start: 201307, end: 201308
  24. PREDNISONE [Concomitant]
     Active Substance: PREDNISONE
     Indication: Premedication
     Route: 042
     Dates: start: 201308, end: 201308
  25. PREDNISONE [Concomitant]
     Active Substance: PREDNISONE
     Dosage: AS REQUIRED
     Route: 048
     Dates: start: 20200923
  26. USTEKINUMAB [Concomitant]
     Active Substance: USTEKINUMAB
     Indication: Crohn^s disease
     Route: 058
     Dates: start: 20201202
  27. KATE FARMS PEPTIDE [Concomitant]
     Indication: Nutritional supplementation
     Dosage: 2 CARTONS
     Route: 048
     Dates: start: 202105

REACTIONS (1)
  - Enterocutaneous fistula [Recovered/Resolved]

NARRATIVE: CASE EVENT DATE: 20211217
